FAERS Safety Report 6175233-7 (Version None)
Quarter: 2009Q2

REPORT INFORMATION
  Report Type: 
  Country: None (occurrence: None)
  Receive Date: 20090430
  Receipt Date: 20090128
  Transmission Date: 20091009
  Serious: No
  Sender: FDA-Public Use
  Company Number: US-ASTRAZENECA-2009UW02565

PATIENT
  Age: 15 Year
  Sex: Male

DRUGS (1)
  1. NEXIUM [Suspect]
     Indication: GASTRITIS
     Route: 048
     Dates: start: 20090127

REACTIONS (2)
  - ABDOMINAL PAIN UPPER [None]
  - INCORRECT ROUTE OF DRUG ADMINISTRATION [None]
